FAERS Safety Report 7712293-3 (Version None)
Quarter: 2011Q3

REPORT INFORMATION
  Report Type: 
  Country: None (occurrence: None)
  Receive Date: 20110826
  Receipt Date: 20110822
  Transmission Date: 20111222
  Serious: Yes (Hospitalization)
  Sender: FDA-Public Use
  Company Number: FR-KINGPHARMUSA00001-K201100979

PATIENT
  Sex: Male

DRUGS (8)
  1. AMLODIPINE [Concomitant]
     Dosage: UNK
     Dates: start: 20080212
  2. ALTACE [Suspect]
     Indication: ESSENTIAL HYPERTENSION
     Dosage: 10 MG, UNK
     Route: 048
     Dates: start: 20080311, end: 20080401
  3. ALISKIREN [Suspect]
     Indication: ESSENTIAL HYPERTENSION
     Dosage: 100 MG, UNK
     Dates: start: 20080311, end: 20080411
  4. BETAHISTINE [Concomitant]
     Dosage: UNK
     Dates: start: 19970519
  5. ASPIRIN [Concomitant]
  6. ZOCOR [Concomitant]
     Dosage: UNK
     Dates: start: 20071214
  7. CLOPIDOGREL [Concomitant]
  8. SERC [Concomitant]

REACTIONS (3)
  - PLATELET COUNT DECREASED [None]
  - CHEST PAIN [None]
  - ACUTE MYOCARDIAL INFARCTION [None]
